FAERS Safety Report 4834936-4 (Version None)
Quarter: 2005Q4

REPORT INFORMATION
  Report Type: 
  Country: None (occurrence: None)
  Receive Date: 20051122
  Receipt Date: 20051116
  Transmission Date: 20060501
  Serious: Yes (Hospitalization)
  Sender: FDA-Public Use
  Company Number: IT-BRISTOL-MYERS SQUIBB COMPANY-13183801

PATIENT
  Age: 35 Year
  Sex: Female

DRUGS (4)
  1. REYATAZ [Suspect]
     Indication: HIV INFECTION
     Route: 048
     Dates: start: 20050623
  2. VIREAD [Suspect]
     Route: 048
     Dates: start: 20050623, end: 20050722
  3. EMTRIVA [Suspect]
     Indication: HIV INFECTION
     Route: 048
     Dates: start: 20050623, end: 20050722
  4. FLUCONAZOLE [Concomitant]

REACTIONS (1)
  - CUSHINGOID [None]
